FAERS Safety Report 5451171-X (Version None)
Quarter: 2007Q3

REPORT INFORMATION
  Report Type: 
  Country: None (occurrence: None)
  Receive Date: 20070913
  Receipt Date: 20070904
  Transmission Date: 20080115
  Serious: Yes (Hospitalization)
  Sender: FDA-Public Use
  Company Number: US-JNJFOC-20070702505

PATIENT
  Sex: Male
  Weight: 83.46 kg

DRUGS (5)
  1. DURAGESIC-100 [Suspect]
     Route: 062
  2. DURAGESIC-100 [Suspect]
     Route: 062
  3. DURAGESIC-100 [Suspect]
     Route: 062
  4. DURAGESIC-100 [Suspect]
     Indication: PAIN
     Route: 062
  5. LORTAB [Concomitant]
     Indication: PAIN
     Dosage: 5MG/500MG
     Route: 048

REACTIONS (2)
  - CHEST DISCOMFORT [None]
  - HERNIA [None]
